FAERS Safety Report 8377949-0 (Version None)
Quarter: 2012Q2

REPORT INFORMATION
  Report Type: 
  Country: None (occurrence: None)
  Receive Date: 20120521
  Receipt Date: 20120507
  Transmission Date: 20120825
  Serious: Yes (Other)
  Sender: FDA-Public Use
  Company Number: 2012P1023313

PATIENT
  Age: 72 Year
  Sex: Female

DRUGS (2)
  1. AMIODARONE HCL [Suspect]
     Indication: SUPRAVENTRICULAR TACHYARRHYTHMIA
  2. ATORVASTATIN CALCIUM [Concomitant]

REACTIONS (5)
  - PERIPHERAL SENSORIMOTOR NEUROPATHY [None]
  - ATAXIA [None]
  - MYOCLONUS [None]
  - NEUROMYOPATHY [None]
  - DYSPHAGIA [None]
